FAERS Safety Report 6055271-5 (Version None)
Quarter: 2009Q1

REPORT INFORMATION
  Report Type: 
  Country: None (occurrence: None)
  Receive Date: 20090123
  Receipt Date: 20090111
  Transmission Date: 20090719
  Serious: Yes (Other)
  Sender: FDA-Public Use
  Company Number: 144257

PATIENT
  Age: 49 Year

DRUGS (10)
  1. VINCRISTINE SULPHATE INJECTION, USP (VINCRISTINE) [Suspect]
     Indication: HODGKIN'S DISEASE
  2. (MECHLORETHAMINE) [Suspect]
     Indication: HODGKIN'S DISEASE
  3. (PROCARBAZINE) [Suspect]
     Indication: HODGKIN'S DISEASE
  4. PREDNISONE [Suspect]
     Indication: HODGKIN'S DISEASE
  5. (DOXORUBICIN) [Suspect]
     Indication: HODGKIN'S DISEASE
  6. BLEOMYCIN SULFATE [Suspect]
     Indication: HODGKIN'S DISEASE
  7. DACARBAZINE [Suspect]
     Indication: HODGKIN'S DISEASE
  8. (THERAPEUTIC RADIOPHARMACEUTICALS) [Suspect]
     Indication: HODGKIN'S DISEASE
     Dosage: 20.0 GY
  9. ETOPOSIDE [Suspect]
     Indication: HODGKIN'S DISEASE
  10. CYCLOPHOSPHAMIDE [Suspect]
     Indication: HODGKIN'S DISEASE

REACTIONS (2)
  - ADENOCARCINOMA [None]
  - METASTATIC NEOPLASM [None]
